FAERS Safety Report 25253619 (Version 1)
Quarter: 2025Q2

REPORT INFORMATION
  Report Type: Spontaneous
  Country: RO (occurrence: RO)
  Receive Date: 20250430
  Receipt Date: 20250430
  Transmission Date: 20250716
  Serious: Yes (Other)
  Sender: MERCK SHARP & DOHME LLC
  Company Number: RO-009507513-2279722

PATIENT
  Age: 61 Year

DRUGS (1)
  1. PEMBROLIZUMAB [Suspect]
     Active Substance: PEMBROLIZUMAB
     Indication: Malignant melanoma stage III
     Dates: start: 202202

REACTIONS (2)
  - Pulmonary mass [Recovered/Resolved]
  - Hypothyroidism [Unknown]

NARRATIVE: CASE EVENT DATE: 20241001
